FAERS Safety Report 6648980-8 (Version None)
Quarter: 2010Q1

REPORT INFORMATION
  Report Type: 
  Country: None (occurrence: None)
  Receive Date: 20100324
  Receipt Date: 20100226
  Transmission Date: 20100710
  Serious: Yes (Other)
  Sender: FDA-Public Use
  Company Number: JP-MERCK-1002USA03829

PATIENT
  Age: 73 Year
  Sex: Female

DRUGS (1)
  1. JANUVIA [Suspect]
     Indication: TYPE 2 DIABETES MELLITUS
     Route: 048
     Dates: start: 20100204, end: 20100208

REACTIONS (2)
  - HEPATIC FUNCTION ABNORMAL [None]
  - JAUNDICE [None]
